FAERS Safety Report 6802507-6 (Version None)
Quarter: 2010Q2

REPORT INFORMATION
  Report Type: 
  Country: None (occurrence: None)
  Receive Date: 20100628
  Receipt Date: 20100614
  Transmission Date: 20101027
  Serious: Yes (Hospitalization)
  Sender: FDA-Public Use
  Company Number: ES-RANBAXY-2010RR-35093

PATIENT
  Age: 2 Month
  Sex: Female
  Weight: 4.7 kg

DRUGS (6)
  1. ACETAMINOPHEN [Suspect]
     Indication: PYREXIA
     Dosage: 500 MG, UNK
  2. ACETAMINOPHEN [Suspect]
     Dosage: 50 MG, QID
  3. ACETYLCYSTEINE [Suspect]
     Dosage: 150 MG/KG, UNK
     Route: 042
  4. ACETYLCYSTEINE [Suspect]
     Dosage: 50 MG/KG, UNK
  5. ACETYLCYSTEINE [Suspect]
     Dosage: 100 MG/KG, UNK
  6. DEXTROSE [Suspect]
     Dosage: 950 ML, UNK

REACTIONS (5)
  - ACCIDENTAL OVERDOSE [None]
  - DRUG TOXICITY [None]
  - GRAND MAL CONVULSION [None]
  - HEPATIC ENCEPHALOPATHY [None]
  - HYPONATRAEMIA [None]
